FAERS Safety Report 9245402 (Version 5)
Quarter: 2021Q2

REPORT INFORMATION
  Report Type: Report from Study
  Country: CA (occurrence: CA)
  Receive Date: 20130422
  Receipt Date: 20210526
  Transmission Date: 20210717
  Serious: Yes (Death)
  Sender: FDA-Public Use
  Company Number: CA-PFIZER INC-2013122289

PATIENT

DRUGS (7)
  1. ETOPOSIDE. [Suspect]
     Active Substance: ETOPOSIDE
     Indication: NEOPLASM
     Dosage: 60 MG/M2, 1X/DAY
     Route: 042
  2. DIPYRIDAMOLE. [Suspect]
     Active Substance: DIPYRIDAMOLE
     Indication: NEOPLASM
     Dosage: 100 MG/M2 EVERY 6 HOURS
     Route: 048
  3. TAMOXIFEN [Suspect]
     Active Substance: TAMOXIFEN
     Indication: NEOPLASM
     Dosage: 100 MG/M2 EACH MORNING FOR SIX DAYS
     Route: 048
  4. CYCLOSPORINE. [Suspect]
     Active Substance: CYCLOSPORINE
     Indication: NEOPLASM
     Dosage: 150 MG/M2, EVERY 12 HOURS
     Route: 048
  5. METRONIDAZOLE. [Suspect]
     Active Substance: METRONIDAZOLE
     Indication: NEOPLASM
     Dosage: 250 MG/M2, 1X/DAY
     Route: 054
  6. KETOCONAZOLE. [Suspect]
     Active Substance: KETOCONAZOLE
     Indication: NEOPLASM
     Dosage: 350 MG/M2 EACH MORNING
     Route: 048
  7. METRONIDAZOLE. [Suspect]
     Active Substance: METRONIDAZOLE
     Indication: NEOPLASM
     Dosage: 750 MG/M2, DAILY
     Route: 048

REACTIONS (1)
  - Neutropenic sepsis [Fatal]
